FAERS Safety Report 7319330-9 (Version None)
Quarter: 2011Q1

REPORT INFORMATION
  Report Type: 
  Country: None (occurrence: None)
  Receive Date: 20110228
  Receipt Date: 20100203
  Transmission Date: 20110831
  Serious: Yes (Other)
  Sender: FDA-Public Use
  Company Number: A0842803A

PATIENT
  Age: 37 Year
  Sex: Female

DRUGS (2)
  1. TRILEPTAL [Concomitant]
  2. LAMOTRIGINE [Suspect]
     Indication: EPILEPSY
     Dosage: 100MG FIVE TIMES PER DAY
     Route: 048
     Dates: start: 20090801, end: 20091001

REACTIONS (2)
  - DRUG INEFFECTIVE [None]
  - CONVULSION [None]
